FAERS Safety Report 22242156 (Version 3)
Quarter: 2023Q2

REPORT INFORMATION
  Report Type: Spontaneous
  Country: CN (occurrence: CN)
  Receive Date: 20230422
  Receipt Date: 20230512
  Transmission Date: 20230721
  Serious: Yes (Hospitalization, Other)
  Sender: FDA-Public Use
  Company Number: CN-Axellia-004696

PATIENT
  Age: 3 Year
  Sex: Male
  Weight: 16 kg

DRUGS (5)
  1. VANCOMYCIN [Suspect]
     Active Substance: VANCOMYCIN
     Indication: Meningitis pneumococcal
     Dosage: 60MG/KG PER DAY, Q6H
     Route: 042
     Dates: start: 20211113, end: 20211206
  2. CEFTRIAXONE [Concomitant]
     Active Substance: CEFTRIAXONE
     Indication: Meningitis pneumococcal
     Dosage: 100MG/KG PER DAY, Q12H
     Route: 042
     Dates: start: 20211113
  3. FLUCONAZOLE [Concomitant]
     Active Substance: FLUCONAZOLE
     Indication: Symptomatic treatment
     Dates: start: 2021
  4. MANNITOL [Concomitant]
     Active Substance: MANNITOL
     Indication: Symptomatic treatment
     Dates: start: 2021
  5. DEXAMETHASONE [Concomitant]
     Active Substance: DEXAMETHASONE
     Indication: Symptomatic treatment
     Dates: start: 2021

REACTIONS (2)
  - Drug-induced liver injury [Recovered/Resolved]
  - Mixed liver injury [Recovered/Resolved]

NARRATIVE: CASE EVENT DATE: 20211203
